FAERS Safety Report 19510909 (Version 1)
Quarter: 2021Q3

REPORT INFORMATION
  Report Type: Other
  Country: FR (occurrence: FR)
  Receive Date: 20210709
  Receipt Date: 20210709
  Transmission Date: 20211014
  Serious: Yes (Other)
  Sender: FDA-Public Use
  Company Number: FR-AJANTA PHARMA USA INC.-2113637

PATIENT
  Weight: 2.49 kg

DRUGS (1)
  1. ALMOTRIPTAN. [Suspect]
     Active Substance: ALMOTRIPTAN
     Route: 064

REACTIONS (2)
  - Foetal growth restriction [Recovered/Resolved]
  - Premature baby [Recovered/Resolved]
